FAERS Safety Report 17794718 (Version 3)
Quarter: 2022Q3

REPORT INFORMATION
  Report Type: Spontaneous
  Country: DK (occurrence: DK)
  Receive Date: 20200516
  Receipt Date: 20220912
  Transmission Date: 20221027
  Serious: Yes (Life-Threatening, Other)
  Sender: FDA-Public Use
  Company Number: DK-SUN PHARMACEUTICAL INDUSTRIES LTD-2020R1-246803

PATIENT
  Age: 67 Year
  Sex: Female
  Weight: 84.1 kg

DRUGS (4)
  1. CARBOPLATIN [Suspect]
     Active Substance: CARBOPLATIN
     Indication: Squamous cell carcinoma
     Dosage: UNK UNK, WEEKLY
     Route: 042
     Dates: start: 20190205
  2. CARBOPLATIN [Suspect]
     Active Substance: CARBOPLATIN
     Indication: Metastases to lymph nodes
  3. NIMORAZOL [Concomitant]
     Indication: Squamous cell carcinoma
     Dosage: UNK
     Route: 065
     Dates: start: 20190205
  4. NIMORAZOL [Concomitant]
     Indication: Metastases to lymph nodes

REACTIONS (1)
  - Deep vein thrombosis [Recovering/Resolving]

NARRATIVE: CASE EVENT DATE: 20190226
